FAERS Safety Report 6601315-9 (Version None)
Quarter: 2010Q1

REPORT INFORMATION
  Report Type: 
  Country: None (occurrence: None)
  Receive Date: 20100225
  Receipt Date: 20100223
  Transmission Date: 20100710
  Serious: Yes (Disabling, Other)
  Sender: FDA-Public Use
  Company Number: DE-SANOFI-AVENTIS-2010SA008578

PATIENT
  Age: 78 Year
  Sex: Female
  Weight: 64 kg

DRUGS (8)
  1. MULTAQ [Suspect]
     Indication: ATRIAL FIBRILLATION
     Route: 048
     Dates: start: 20100124, end: 20100215
  2. CARMEN [Concomitant]
     Indication: HYPERTENSION
     Dosage: DOSAGE: 1/2 TAB DAILY
     Route: 048
     Dates: start: 20040101
  3. DIOVANE [Concomitant]
     Indication: HYPERTENSION
     Dosage: DOSAGE: 1/DIE
     Route: 048
     Dates: start: 20020101
  4. TAMBOCOR [Concomitant]
     Indication: ATRIAL FIBRILLATION
     Dosage: DOSAGE: 1 DAILY
     Route: 048
     Dates: start: 20060101
  5. DYTIDE [Concomitant]
     Indication: HYPERTENSION
     Dosage: DOSAGE: 1/DIE
     Route: 048
     Dates: start: 20020101
  6. PROCORUM [Concomitant]
     Indication: HYPERTENSION
     Dosage: DOSAGE: 2/DIE
     Route: 048
     Dates: start: 20060101
  7. THYROXIN [Concomitant]
     Indication: HYPOTHYROIDISM
     Route: 048
  8. COUMADIN [Concomitant]
     Indication: DRUG USE FOR UNKNOWN INDICATION
     Route: 065
     Dates: start: 20080101

REACTIONS (6)
  - AGEUSIA [None]
  - ASTHENIA [None]
  - DECREASED APPETITE [None]
  - DYSGEUSIA [None]
  - LABELLED DRUG-DRUG INTERACTION MEDICATION ERROR [None]
  - SUDDEN HEARING LOSS [None]
